FAERS Safety Report 7520360-2 (Version None)
Quarter: 2011Q2

REPORT INFORMATION
  Report Type: 
  Country: None (occurrence: None)
  Receive Date: 20110602
  Receipt Date: 20110525
  Transmission Date: 20111010
  Serious: Yes (Hospitalization)
  Sender: FDA-Public Use
  Company Number: PHHY2011US46791

PATIENT
  Age: 2 Year
  Sex: Male

DRUGS (1)
  1. CEFTRIAXONE [Suspect]
     Indication: ACUTE CHEST SYNDROME

REACTIONS (11)
  - ACIDOSIS [None]
  - BLOOD LACTATE DEHYDROGENASE INCREASED [None]
  - HAPTOGLOBIN DECREASED [None]
  - OXYGEN SATURATION DECREASED [None]
  - BLOOD BILIRUBIN INCREASED [None]
  - MYOGLOBIN URINE PRESENT [None]
  - UNRESPONSIVE TO STIMULI [None]
  - ANAEMIA [None]
  - BLOOD PRESSURE DECREASED [None]
  - HAEMOLYSIS [None]
  - HAEMATURIA [None]
